FAERS Safety Report 7476715-8 (Version None)
Quarter: 2011Q2

REPORT INFORMATION
  Report Type: 
  Country: None (occurrence: None)
  Receive Date: 20110512
  Receipt Date: 20110502
  Transmission Date: 20111010
  Serious: Yes (Hospitalization)
  Sender: FDA-Public Use
  Company Number: DE-ACTELION-A-CH2011-47551

PATIENT
  Sex: Male
  Weight: 83 kg

DRUGS (8)
  1. SIMVASTATIN [Concomitant]
  2. TRACLEER [Suspect]
     Indication: SKIN ULCER
     Dosage: 125 MG, BID
     Route: 048
     Dates: start: 20101104, end: 20110309
  3. ASPIRIN [Suspect]
  4. TRACLEER [Suspect]
     Dosage: 62.5 MG, BID
     Route: 048
     Dates: start: 20100923, end: 20101103
  5. TRACLEER [Suspect]
     Dosage: 62.5 MG, BID
     Route: 048
     Dates: start: 20110310
  6. CLOPIDOGREL [Suspect]
  7. METOPROLOL TARTRATE [Concomitant]
  8. CANDESARTAN [Concomitant]

REACTIONS (6)
  - GASTROINTESTINAL HAEMORRHAGE [None]
  - FATIGUE [None]
  - HAEMOGLOBIN DECREASED [None]
  - PACKED RED BLOOD CELL TRANSFUSION [None]
  - ASTHENIA [None]
  - PALLOR [None]
